FAERS Safety Report 6804286-5 (Version None)
Quarter: 2010Q2

REPORT INFORMATION
  Report Type: 
  Country: None (occurrence: None)
  Receive Date: 20100628
  Receipt Date: 20070219
  Transmission Date: 20101027
  Serious: Yes (Other)
  Sender: FDA-Public Use
  Company Number: US-PFIZER INC-2007002627

PATIENT
  Sex: Male
  Weight: 93 kg

DRUGS (3)
  1. GEODON [Suspect]
     Indication: SCHIZOPHRENIA
     Dosage: DAILY: EVERY DAY
     Dates: start: 20060425
  2. ZOLOFT [Concomitant]
     Dates: start: 20040201
  3. SEROQUEL [Concomitant]
     Dates: start: 20030401

REACTIONS (1)
  - TARDIVE DYSKINESIA [None]
